FAERS Safety Report 8257546 (Version 5)
Quarter: 2013Q2

REPORT INFORMATION
  Report Type: Spontaneous
  Country: US (occurrence: US)
  Receive Date: 20111121
  Receipt Date: 20130626
  Transmission Date: 20140414
  Serious: Yes (Other)
  Sender: FDA-Public Use
  Company Number: US-ASTRAZENECA-2011SE68880

PATIENT
  Age: 58 Year
  Sex: Female
  Weight: 83.5 kg

DRUGS (22)
  1. SEROQUEL [Suspect]
     Indication: BIPOLAR DISORDER
     Route: 048
  2. SEROQUEL [Suspect]
     Indication: BIPOLAR DISORDER
     Route: 048
  3. SEROQUEL [Suspect]
     Indication: BIPOLAR DISORDER
     Route: 048
  4. SEROQUEL [Suspect]
     Indication: BIPOLAR DISORDER
     Route: 048
  5. SEROQUEL [Suspect]
     Indication: BIPOLAR DISORDER
     Route: 048
     Dates: start: 2003
  6. SEROQUEL [Suspect]
     Indication: BIPOLAR DISORDER
     Route: 048
     Dates: start: 201303
  7. ATIVAN [Concomitant]
     Indication: ANXIETY
     Dates: start: 2003
  8. ATIVAN [Concomitant]
     Indication: PANIC DISORDER
     Dates: start: 2003
  9. FOSAMAX [Concomitant]
     Indication: OSTEOPOROSIS
     Dosage: 7 MG EVERY MONDAY
  10. FOSAMAX [Concomitant]
     Indication: OSTEOPOROSIS
     Dates: start: 2009
  11. VITAMIN D [Concomitant]
  12. VITAMIN D [Concomitant]
     Dates: start: 201304
  13. NEURONTIN [Concomitant]
     Indication: NEURALGIA
     Dates: start: 2009
  14. TRAZADONE [Concomitant]
     Indication: SLEEP DISORDER
     Dates: start: 2010
  15. PRAVASTATIN [Concomitant]
     Indication: BLOOD CHOLESTEROL ABNORMAL
     Dates: start: 2009
  16. PAXIL [Concomitant]
     Indication: DEPRESSION
  17. PAXIL [Concomitant]
     Indication: DEPRESSION
     Dates: start: 2009
  18. FOLIC ACID [Concomitant]
     Indication: NERVOUS SYSTEM DISORDER
     Dates: start: 2009
  19. PREDNISONE [Concomitant]
     Indication: ALLERGY TO PLANTS
  20. PROTONIX [Concomitant]
     Indication: GASTROOESOPHAGEAL REFLUX DISEASE
  21. FISH OIL [Concomitant]
  22. TUMS [Concomitant]
     Indication: MINERAL SUPPLEMENTATION

REACTIONS (11)
  - Mania [Unknown]
  - Paranoia [Unknown]
  - Hallucination, visual [Unknown]
  - Depression [Unknown]
  - Insomnia [Unknown]
  - Psychotic disorder [Unknown]
  - Altered state of consciousness [Unknown]
  - Tachyphrenia [Unknown]
  - Panic attack [Unknown]
  - Stress [Unknown]
  - Intentional drug misuse [Unknown]
